FAERS Safety Report 9929721 (Version 2)
Quarter: 2014Q2

REPORT INFORMATION
  Report Type: Spontaneous
  Country: GB (occurrence: GB)
  Receive Date: 20140227
  Receipt Date: 20140502
  Transmission Date: 20141212
  Serious: Yes (Other)
  Sender: FDA-Public Use
  Company Number: GB-MYLANLABS-2014S1003521

PATIENT
  Age: 77 Year
  Sex: Female

DRUGS (16)
  1. LANSOPRAZOLE [Suspect]
     Indication: HIATUS HERNIA
     Dosage: 30 MG, UNK
     Route: 048
     Dates: start: 20081217, end: 20140207
  2. LANSOPRAZOLE [Suspect]
     Indication: COELIAC DISEASE
     Dosage: 30 MG, UNK
     Route: 048
     Dates: start: 20081217, end: 20140207
  3. LANSOPRAZOLE [Suspect]
     Indication: GASTROOESOPHAGEAL REFLUX DISEASE
     Dosage: 30 MG, UNK
     Route: 048
     Dates: start: 20081217, end: 20140207
  4. LANSOPRAZOLE [Suspect]
     Indication: HIATUS HERNIA
  5. LANSOPRAZOLE [Suspect]
     Indication: COELIAC DISEASE
  6. LANSOPRAZOLE [Suspect]
     Indication: GASTROOESOPHAGEAL REFLUX DISEASE
  7. LANSOPRAZOLE [Suspect]
     Indication: HIATUS HERNIA
     Route: 048
     Dates: start: 20060215, end: 2006
  8. LANSOPRAZOLE [Suspect]
     Indication: COELIAC DISEASE
     Route: 048
     Dates: start: 20060215, end: 2006
  9. LANSOPRAZOLE [Suspect]
     Indication: GASTROOESOPHAGEAL REFLUX DISEASE
     Route: 048
     Dates: start: 20060215, end: 2006
  10. RANITIDINE [Concomitant]
     Indication: PRODUCT USED FOR UNKNOWN INDICATION
     Dosage: 300 MG, BID
  11. METOCLOPRAMIDE [Concomitant]
     Indication: PRODUCT USED FOR UNKNOWN INDICATION
     Dosage: 20 MG, DAILY
  12. LEVOTHYROXINE [Concomitant]
     Indication: PRODUCT USED FOR UNKNOWN INDICATION
     Dosage: 125 MCG, DAILY
  13. BENDROFLUMETHIAZIDE [Concomitant]
     Indication: PRODUCT USED FOR UNKNOWN INDICATION
     Dosage: 2.5 MG, DAILY
  14. CITALOPRAM [Concomitant]
     Indication: PRODUCT USED FOR UNKNOWN INDICATION
     Dosage: 20 MG, DAILY
  15. LISINOPRIL [Concomitant]
     Indication: PRODUCT USED FOR UNKNOWN INDICATION
     Dosage: 2.5 MG, DAILY
  16. PARACETAMOL [Concomitant]
     Indication: PRODUCT USED FOR UNKNOWN INDICATION
     Dosage: UNK, PRN

REACTIONS (15)
  - Tremor [Not Recovered/Not Resolved]
  - Anaemia [Not Recovered/Not Resolved]
  - Fatigue [Not Recovered/Not Resolved]
  - Hyperhidrosis [Not Recovered/Not Resolved]
  - Dyskinesia [Not Recovered/Not Resolved]
  - Decreased appetite [Not Recovered/Not Resolved]
  - Decreased interest [Not Recovered/Not Resolved]
  - Sleep disorder [Not Recovered/Not Resolved]
  - Gingival disorder [Not Recovered/Not Resolved]
  - Nasal congestion [Not Recovered/Not Resolved]
  - Gingival erythema [Not Recovered/Not Resolved]
  - Tongue exfoliation [Not Recovered/Not Resolved]
  - Feeling hot [Unknown]
  - Oral pain [Unknown]
  - Pain [Unknown]
